FAERS Safety Report 11331719 (Version 1)
Quarter: 2015Q3

REPORT INFORMATION
  Report Type: Spontaneous
  Country: FR (occurrence: FR)
  Receive Date: 20150803
  Receipt Date: 20150803
  Transmission Date: 20151125
  Serious: Yes (Hospitalization)
  Sender: FDA-Public Use
  Company Number: FR-BAYER-200510447BFR

PATIENT
  Age: 58 Year
  Sex: Female

DRUGS (6)
  1. IZILOX [Suspect]
     Active Substance: MOXIFLOXACIN HYDROCHLORIDE
     Indication: EAR INFECTION
  2. TEMESTA [Concomitant]
     Active Substance: LORAZEPAM
     Indication: PRODUCT USED FOR UNKNOWN INDICATION
     Dosage: UNK
     Dates: start: 1985
  3. IZILOX [Suspect]
     Active Substance: MOXIFLOXACIN HYDROCHLORIDE
     Indication: BRONCHITIS CHRONIC
     Dosage: 400 MG, QD
     Route: 048
     Dates: start: 20050211, end: 20050215
  4. EFFERALGAN [PARACETAMOL] [Concomitant]
     Indication: PRODUCT USED FOR UNKNOWN INDICATION
     Dosage: UNK
     Dates: start: 20041001, end: 20050227
  5. GAVISCON [SODIUM ALGINATE,SODIUM BICARBONATE] [Concomitant]
     Indication: PRODUCT USED FOR UNKNOWN INDICATION
     Dates: start: 20041231, end: 20050225
  6. LUMIRELAX [Concomitant]
     Active Substance: METHOCARBAMOL
     Indication: PRODUCT USED FOR UNKNOWN INDICATION
     Dosage: UNK
     Dates: start: 20050128, end: 20050202

REACTIONS (11)
  - Pyrexia [Recovered/Resolved with Sequelae]
  - Skin erosion [Recovered/Resolved with Sequelae]
  - Eye irritation [None]
  - Burning sensation [Recovered/Resolved with Sequelae]
  - Cheilitis [Recovered/Resolved with Sequelae]
  - Respiratory disorder [Recovered/Resolved with Sequelae]
  - Rash [Recovered/Resolved with Sequelae]
  - Mucosal erosion [Recovered/Resolved with Sequelae]
  - Toxic epidermal necrolysis [Recovered/Resolved with Sequelae]
  - Conjunctivitis [Recovered/Resolved with Sequelae]
  - Symblepharon [None]

NARRATIVE: CASE EVENT DATE: 20050224
